FAERS Safety Report 8156325-X (Version None)
Quarter: 2012Q1

REPORT INFORMATION
  Report Type: 
  Country: None (occurrence: None)
  Receive Date: 20120222
  Receipt Date: 20110722
  Transmission Date: 20120608
  Serious: No
  Sender: FDA-Public Use
  Company Number: US-BRISTOL-MYERS SQUIBB COMPANY-15916588

PATIENT
  Sex: Female

DRUGS (1)
  1. KENALOG [Suspect]
     Indication: HYPERSENSITIVITY
     Dates: start: 20110101

REACTIONS (3)
  - ABDOMINAL DISTENSION [None]
  - WEIGHT INCREASED [None]
  - WEIGHT DECREASED [None]
